FAERS Safety Report 19994043 (Version 1)
Quarter: 2021Q4

REPORT INFORMATION
  Report Type: Spontaneous
  Country: US (occurrence: US)
  Receive Date: 20211026
  Receipt Date: 20211026
  Transmission Date: 20220303
  Serious: No
  Sender: FDA-Public Use
  Company Number: US-SA-SAC20211021000482

PATIENT
  Age: 38 Year
  Sex: Female

DRUGS (36)
  1. FABRAZYME [Suspect]
     Active Substance: AGALSIDASE BETA
     Indication: Lipidosis
     Dosage: 65 MG, QOW
     Route: 042
     Dates: start: 20070323
  2. FABRAZYME [Suspect]
     Active Substance: AGALSIDASE BETA
     Indication: Fabry^s disease
  3. AUGMENTIN [Concomitant]
     Active Substance: AMOXICILLIN\CLAVULANATE POTASSIUM
  4. METOPROLOL SUCCINATE [Concomitant]
     Active Substance: METOPROLOL SUCCINATE
  5. ISOSORBIDE MONONITRATE [Concomitant]
     Active Substance: ISOSORBIDE MONONITRATE
  6. HYDRALAZINE [Concomitant]
     Active Substance: HYDRALAZINE HYDROCHLORIDE
  7. ZOFRAN [Concomitant]
     Active Substance: ONDANSETRON HYDROCHLORIDE
  8. CAPSAICIN [Concomitant]
     Active Substance: CAPSAICIN
  9. HEPARIN [Concomitant]
     Active Substance: HEPARIN SODIUM
  10. LIDOCAINE [Concomitant]
     Active Substance: LIDOCAINE
  11. PRILOCAINE [Concomitant]
     Active Substance: PRILOCAINE
  12. STERILE WATER [Concomitant]
     Active Substance: WATER
  13. EPINEPHRINE [Concomitant]
     Active Substance: EPINEPHRINE
  14. WARFARIN SODIUM [Concomitant]
     Active Substance: WARFARIN SODIUM
  15. DOCUSATE SODIUM [Concomitant]
     Active Substance: DOCUSATE SODIUM
  16. GABAPENTIN [Concomitant]
     Active Substance: GABAPENTIN
  17. ACETAMINOPHEN [Concomitant]
     Active Substance: ACETAMINOPHEN
  18. CODEINE [Concomitant]
     Active Substance: CODEINE
  19. NIFEDIPINE [Concomitant]
     Active Substance: NIFEDIPINE
  20. BISACODYL [Concomitant]
     Active Substance: BISACODYL
  21. PANTOPRAZOLE [Concomitant]
     Active Substance: PANTOPRAZOLE
  22. ASPIRIN [Concomitant]
     Active Substance: ASPIRIN
  23. VITAMIN D NOS [Concomitant]
     Active Substance: VITAMIN D NOS
  24. NITROFURANTOIN [Concomitant]
     Active Substance: NITROFURANTOIN
  25. HYDROXYZINE [Concomitant]
     Active Substance: HYDROXYZINE HYDROCHLORIDE
  26. SEVELAMER CARBONATE [Concomitant]
     Active Substance: SEVELAMER CARBONATE
  27. TRIAMCINOLONE ACETONIDE [Concomitant]
     Active Substance: TRIAMCINOLONE ACETONIDE
  28. TACROLIMUS [Concomitant]
     Active Substance: TACROLIMUS
  29. MIRALAX [Concomitant]
     Active Substance: POLYETHYLENE GLYCOL 3350
  30. MECLIZINE [Concomitant]
     Active Substance: MECLIZINE HYDROCHLORIDE
  31. PROCHLORPERAZINE [Concomitant]
     Active Substance: PROCHLORPERAZINE
  32. PROGESTERONE [Concomitant]
     Active Substance: PROGESTERONE
  33. MACROCID [Concomitant]
     Indication: Nasopharyngitis
  34. MACROCID [Concomitant]
     Indication: Influenza
  35. DULCOLAX (BISACODYL) [Concomitant]
     Active Substance: BISACODYL
     Indication: Sinusitis
  36. PNEUMOVAX 23 [Concomitant]
     Active Substance: PNEUMOCOCCAL VACCINE, POLYVALENT 23
     Indication: Immunisation

REACTIONS (2)
  - Erythema [Unknown]
  - Product use in unapproved indication [Unknown]

NARRATIVE: CASE EVENT DATE: 20070323
